FAERS Safety Report 5003441-7 (Version None)
Quarter: 2006Q1

REPORT INFORMATION
  Report Type: 
  Country: None (occurrence: None)
  Receive Date: 20060320
  Receipt Date: 20060123
  Transmission Date: 20060701
  Serious: Yes (Other)
  Sender: FDA-Public Use
  Company Number: HQWYE527127JAN06

PATIENT
  Age: 36 Year
  Sex: Female
  Weight: 59.02 kg

DRUGS (5)
  1. LO/OVRAL [Suspect]
     Indication: CONTRACEPTION
     Dosage: 1 TABLET 1X PER 1 DAY, ORAL
     Route: 048
     Dates: start: 19890101, end: 20051220
  2. FISH (FISH OIL) [Concomitant]
  3. CALCIUM (CALCIUM) [Concomitant]
  4. CLARINEX [Concomitant]
  5. MULTIVITAMINS, PLAIN (MULTIVITAMINS, PLAIN) [Concomitant]

REACTIONS (1)
  - CHEST PAIN [None]
